FAERS Safety Report 6732239-4 (Version None)
Quarter: 2010Q2

REPORT INFORMATION
  Report Type: 
  Country: None (occurrence: None)
  Receive Date: 20100519
  Receipt Date: 20100512
  Transmission Date: 20101027
  Serious: Yes (Hospitalization)
  Sender: FDA-Public Use
  Company Number: A0859378A

PATIENT
  Age: 67 Year
  Sex: Male

DRUGS (9)
  1. FLOVENT [Suspect]
     Indication: CHRONIC OBSTRUCTIVE PULMONARY DISEASE
     Dosage: 2PUFF TWICE PER DAY
     Route: 055
     Dates: start: 20000101
  2. ATROVENT [Concomitant]
  3. VENTOLIN [Concomitant]
  4. THEOPHYLLINE [Concomitant]
  5. SINGULAIR [Concomitant]
  6. CELEBREX [Concomitant]
  7. LISINOPRIL [Concomitant]
  8. ALLERGY MEDICINE (UNSPECIFIED) [Concomitant]
  9. OXYGEN [Concomitant]

REACTIONS (6)
  - DRUG INEFFECTIVE [None]
  - DYSPHAGIA [None]
  - DYSPNOEA [None]
  - HYPOVENTILATION [None]
  - RHINORRHOEA [None]
  - THROAT IRRITATION [None]
